FAERS Safety Report 23467398 (Version 1)
Quarter: 2024Q1

REPORT INFORMATION
  Report Type: Spontaneous
  Country: US (occurrence: None)
  Receive Date: 20240131
  Receipt Date: 20240131
  Transmission Date: 20240409
  Serious: No
  Sender: FDA-Public Use
  Company Number: None

PATIENT
  Age: 23 Year
  Sex: Female
  Weight: 70.31 kg

DRUGS (1)
  1. KYLEENA [Suspect]
     Active Substance: LEVONORGESTREL
     Dates: start: 20230301, end: 20240108

REACTIONS (5)
  - Complication associated with device [None]
  - Heavy menstrual bleeding [None]
  - Uterine spasm [None]
  - Fatigue [None]
  - Mood swings [None]
